FAERS Safety Report 4312555-6 (Version None)
Quarter: 2004Q1

REPORT INFORMATION
  Report Type: 
  Country: None (occurrence: None)
  Receive Date: 20040302
  Receipt Date: 20031230
  Transmission Date: 20041129
  Serious: No
  Sender: FDA-Public Use
  Company Number: 200331101BWH

PATIENT
  Age: 66 Year
  Sex: Male
  Weight: 108.8633 kg

DRUGS (4)
  1. LEVITRA [Suspect]
     Indication: ERECTILE DYSFUNCTION
     Dosage: 20 MG ONCE ORAL
     Route: 048
     Dates: start: 20031229
  2. PREDNISONE [Concomitant]
  3. LOTREL [Concomitant]
  4. CELEBREX [Concomitant]

REACTIONS (1)
  - ERECTILE DYSFUNCTION [None]
